FAERS Safety Report 7681217-X (Version None)
Quarter: 2011Q3

REPORT INFORMATION
  Report Type: 
  Country: None (occurrence: None)
  Receive Date: 20110812
  Receipt Date: 20110808
  Transmission Date: 20111222
  Serious: Yes (Life-Threatening, Hospitalization, Other)
  Sender: FDA-Public Use
  Company Number: US-ELI_LILLY_AND_COMPANY-US200907000787

PATIENT
  Sex: Female
  Weight: 86.168 kg

DRUGS (7)
  1. IBUPROFEN [Concomitant]
     Dosage: 600 MG, 3/D
  2. SPIRONOLACTONE W/ HYDROCHLOROTHIAZIDE [Concomitant]
     Dosage: 25 MG, DAILY (1/D)
  3. METFORMIN HCL [Concomitant]
     Indication: DIABETES MELLITUS
  4. AVANDAMET [Concomitant]
     Dosage: 1500 MG, 3/D
  5. TYLENOL                                 /SCH/ [Concomitant]
  6. BYETTA [Suspect]
     Dosage: 10 UG, 2/D
     Route: 065
     Dates: start: 20060321, end: 20070604
  7. CRESTOR [Concomitant]
     Dosage: 5 MG, DAILY (1/D)

REACTIONS (11)
  - PANCREATITIS ACUTE [None]
  - OFF LABEL USE [None]
  - CHOLANGITIS [None]
  - CHOLELITHIASIS [None]
  - PANCREATIC ENZYMES DECREASED [None]
  - BLOOD INSULIN DECREASED [None]
  - PANCREATITIS [None]
  - CHEST TUBE INSERTION [None]
  - DYSPEPSIA [None]
  - BOWEL MOVEMENT IRREGULARITY [None]
  - HELICOBACTER TEST POSITIVE [None]
